FAERS Safety Report 17439649 (Version 1)
Quarter: 2020Q1

REPORT INFORMATION
  Report Type: Spontaneous
  Country: US (occurrence: US)
  Receive Date: 20200220
  Receipt Date: 20200220
  Transmission Date: 20200409
  Serious: Yes (Hospitalization)
  Sender: FDA-Public Use
  Company Number: US-ELI_LILLY_AND_COMPANY-US202002004387

PATIENT
  Age: 81 Year
  Sex: Male

DRUGS (1)
  1. FORTEO [Suspect]
     Active Substance: TERIPARATIDE
     Indication: OSTEOPOROSIS
     Dosage: 20 UG, UNKNOWN
     Route: 058
     Dates: start: 20200115, end: 20200205

REACTIONS (9)
  - Moaning [Unknown]
  - Pain [Unknown]
  - Decreased appetite [Unknown]
  - Blood pressure decreased [Recovering/Resolving]
  - Diarrhoea [Unknown]
  - Poor quality sleep [Unknown]
  - Muscle spasms [Unknown]
  - Dehydration [Unknown]
  - Nausea [Unknown]
